FAERS Safety Report 9463067 (Version 2)
Quarter: 2013Q3

REPORT INFORMATION
  Report Type: Report from Study
  Country: US (occurrence: US)
  Receive Date: 20130816
  Receipt Date: 20130912
  Transmission Date: 20140515
  Serious: Yes (Other)
  Sender: FDA-Public Use
  Company Number: PHEH2012US025963

PATIENT
  Age: 43 Year
  Sex: Male
  Weight: 99.77 kg

DRUGS (1)
  1. GILENYA [Suspect]
     Indication: MULTIPLE SCLEROSIS
     Dosage: 0.5 MG, QD
     Route: 048
     Dates: start: 20111208

REACTIONS (3)
  - Neuropathy peripheral [Recovering/Resolving]
  - Concomitant disease progression [Recovering/Resolving]
  - Fatigue [Unknown]
